FAERS Safety Report 11612104 (Version 2)
Quarter: 2015Q4

REPORT INFORMATION
  Report Type: Other
  Country: US (occurrence: US)
  Receive Date: 20151008
  Receipt Date: 20151027
  Transmission Date: 20160304
  Serious: Yes (Death)
  Sender: FDA-Public Use
  Company Number: US-UNITED THERAPEUTICS-UNT-2015-012432

PATIENT
  Age: 76 Year
  Sex: Female
  Weight: 86.17 kg

DRUGS (1)
  1. REMODULIN [Suspect]
     Active Substance: TREPROSTINIL
     Indication: PULMONARY HYPERTENSION
     Dosage: 0.003 ?G/KG, CONTINUING
     Route: 041

REACTIONS (3)
  - Cardiac failure [Fatal]
  - Adverse drug reaction [Unknown]
  - Respiratory failure [Fatal]

NARRATIVE: CASE EVENT DATE: 201509
